FAERS Safety Report 24062506 (Version 2)
Quarter: 2024Q3

REPORT INFORMATION
  Report Type: Spontaneous
  Country: US (occurrence: US)
  Receive Date: 20240708
  Receipt Date: 20240809
  Transmission Date: 20241017
  Serious: Yes (Other)
  Sender: KYOWA
  Company Number: US-KYOWAKIRIN-2024KK016348

PATIENT

DRUGS (2)
  1. CRYSVITA [Suspect]
     Active Substance: BUROSUMAB-TWZA
     Indication: Hereditary hypophosphataemic rickets
     Dosage: 60 MG, 1X/4 WEEKS
     Route: 058
  2. CALCITRIOL [Concomitant]
     Active Substance: CALCITRIOL
     Indication: Product used for unknown indication
     Dosage: 0.25 UG
     Route: 065

REACTIONS (7)
  - Bladder agenesis [Recovered/Resolved]
  - Hyperaesthesia teeth [Unknown]
  - Restlessness [Unknown]
  - Walking aid user [Unknown]
  - Hypoparathyroidism [Unknown]
  - Muscle spasms [Unknown]
  - Dizziness [Unknown]
